FAERS Safety Report 8019275 (Version 5)
Quarter: 2012Q4

REPORT INFORMATION
  Report Type: 
  Country: JP (occurrence: JP)
  Receive Date: 20110702
  Receipt Date: 20121022
  Transmission Date: 20130627
  Serious: Yes (Hospitalization, Other)
  Sender: FDA-Public Use
  Company Number: JP-B.I. PHARMACEUTICALS,INC./RIDGEFIELD-2011-DE-03741GD

PATIENT
  Sex: Male
  Weight: 60 kg

DRUGS (9)
  1. PRAMIPEXOLE [Suspect]
     Indication: PARKINSON^S DISEASE
     Dosage: 3 mg
     Route: 048
     Dates: end: 20110123
  2. PRAMIPEXOLE [Suspect]
     Dosage: 1.5 mg
     Route: 048
     Dates: start: 20110124, end: 20110126
  3. TRIHEXYPHENIDYL HYDROCHLORIDE [Suspect]
     Indication: PARKINSON^S DISEASE
     Dosage: 6 mg
     Route: 048
     Dates: end: 20110114
  4. SELEGILINE HYDROCHLORIDE [Suspect]
     Indication: PARKINSON^S DISEASE
     Dosage: 5 mg
     Route: 048
     Dates: end: 20110117
  5. DONEPEZIL HYDROCHLORIDE [Suspect]
     Indication: PARKINSON^S DISEASE
     Dosage: 2.5 mg
     Route: 048
     Dates: end: 20110120
  6. DONEPEZIL HYDROCHLORIDE [Suspect]
     Dosage: 5 mg
     Route: 048
  7. L-DOPA [Concomitant]
     Indication: PARKINSON^S DISEASE
     Dosage: 400 mg
  8. ENTACAPONE [Concomitant]
     Indication: PARKINSON^S DISEASE
     Dosage: 300 mg
  9. OMEPRAZOLE [Concomitant]
     Dosage: 20 mg

REACTIONS (8)
  - Hallucination [Not Recovered/Not Resolved]
  - Delusion [Not Recovered/Not Resolved]
  - Agitation [Not Recovered/Not Resolved]
  - Cognitive disorder [Not Recovered/Not Resolved]
  - Delirium [Unknown]
  - Listless [Not Recovered/Not Resolved]
  - Suicidal ideation [Not Recovered/Not Resolved]
  - Depression [Unknown]
